FAERS Safety Report 23991949 (Version 3)
Quarter: 2024Q2

REPORT INFORMATION
  Report Type: Spontaneous
  Country: CH (occurrence: CH)
  Receive Date: 20240620
  Receipt Date: 20240628
  Transmission Date: 20240716
  Serious: Yes (Life-Threatening, Hospitalization, Other)
  Sender: FDA-Public Use
  Company Number: CH-ABBVIE-5802344

PATIENT
  Age: 58 Year
  Sex: Male
  Weight: 119 kg

DRUGS (11)
  1. HUMIRA [Suspect]
     Active Substance: ADALIMUMAB
     Indication: Colitis ulcerative
     Route: 058
     Dates: start: 201709
  2. INFLIXIMAB [Concomitant]
     Active Substance: INFLIXIMAB
     Indication: Colitis ulcerative
     Dates: start: 2024
  3. PREDNISONE [Concomitant]
     Active Substance: PREDNISONE
     Indication: Colitis ulcerative
     Dates: end: 202207
  4. DEXAMETHASONE [Concomitant]
     Active Substance: DEXAMETHASONE
     Indication: Product used for unknown indication
  5. Vancomycinum [Concomitant]
     Indication: Clostridium test positive
     Dates: start: 2018, end: 2018
  6. METHOTREXATE [Concomitant]
     Active Substance: METHOTREXATE
     Indication: Product used for unknown indication
     Dates: start: 20200923
  7. METHOTREXATE [Concomitant]
     Active Substance: METHOTREXATE
     Indication: Product used for unknown indication
  8. METHOTREXATE [Concomitant]
     Active Substance: METHOTREXATE
     Indication: Product used for unknown indication
     Dosage: 17.5 MILLIGRAM
  9. METFORMIN HYDROCHLORIDE [Concomitant]
     Active Substance: METFORMIN HYDROCHLORIDE
     Indication: Type 2 diabetes mellitus
     Dosage: START DATE TEXT: UNKNOWN
  10. FIDAXOMICIN [Concomitant]
     Active Substance: FIDAXOMICIN
     Indication: Clostridium test positive
     Dates: start: 2018, end: 2018
  11. RINVOQ [Suspect]
     Active Substance: UPADACITINIB
     Indication: Colitis ulcerative
     Route: 048
     Dates: start: 2022, end: 202308

REACTIONS (29)
  - Terminal state [Not Recovered/Not Resolved]
  - Coronavirus infection [Unknown]
  - Arthropathy [Unknown]
  - Gastrointestinal disorder [Unknown]
  - Gastroenteritis salmonella [Unknown]
  - Escherichia urinary tract infection [Recovered/Resolved]
  - Tachycardia [Unknown]
  - Pain in extremity [Unknown]
  - Colitis ulcerative [Unknown]
  - Haematochezia [Unknown]
  - Clostridium test positive [Recovered/Resolved]
  - Ureterolithiasis [Unknown]
  - Diarrhoea [Recovered/Resolved]
  - Diarrhoea [Recovered/Resolved]
  - Faecal calprotectin increased [Unknown]
  - Pyelonephritis [Unknown]
  - Escherichia sepsis [Unknown]
  - Abdominal pain [Unknown]
  - Exercise tolerance decreased [Unknown]
  - Spinal osteoarthritis [Unknown]
  - Osteoarthritis [Unknown]
  - Frequent bowel movements [Not Recovered/Not Resolved]
  - Transaminases increased [Unknown]
  - Fatigue [Unknown]
  - Cystitis [Recovered/Resolved]
  - Inflammation [Unknown]
  - Candida infection [Recovered/Resolved]
  - Peripheral spondyloarthritis [Unknown]
  - Off label use [Recovered/Resolved]

NARRATIVE: CASE EVENT DATE: 20171001
